FAERS Safety Report 21990919 (Version 1)
Quarter: 2023Q1

REPORT INFORMATION
  Report Type: Spontaneous
  Country: US (occurrence: None)
  Receive Date: 20230213
  Receipt Date: 20230213
  Transmission Date: 20230417
  Serious: Yes (Life-Threatening, Hospitalization)
  Sender: FDA-Public Use
  Company Number: None

PATIENT
  Age: 78 Year
  Sex: Male
  Weight: 69.2 kg

DRUGS (1)
  1. TNKASE [Suspect]
     Active Substance: TENECTEPLASE
     Indication: Ischaemic stroke
     Dosage: OTHER FREQUENCY : ONCE;?
     Route: 040
     Dates: start: 20230208, end: 20230208

REACTIONS (3)
  - Cerebral haematoma [None]
  - Subarachnoid haemorrhage [None]
  - Cerebral mass effect [None]

NARRATIVE: CASE EVENT DATE: 20230209
